FAERS Safety Report 16499251 (Version 2)
Quarter: 2019Q3

REPORT INFORMATION
  Report Type: Spontaneous
  Country: US (occurrence: US)
  Receive Date: 20190701
  Receipt Date: 20190704
  Transmission Date: 20191004
  Serious: Yes (Other)
  Sender: FDA-Public Use
  Company Number: US-AMGEN-USASP2019101847

PATIENT
  Age: 57 Year
  Sex: Male
  Weight: 80.73 kg

DRUGS (2)
  1. KYPROLIS [Suspect]
     Active Substance: CARFILZOMIB
     Dosage: 80 MILLIGRAM
     Route: 065
     Dates: end: 20190624
  2. KYPROLIS [Suspect]
     Active Substance: CARFILZOMIB
     Indication: PLASMA CELL MYELOMA
     Dosage: 37 MILLIGRAM/SQ. METER (TOTAL DOSE 80 MILLIGRAM)
     Route: 065
     Dates: start: 20190214

REACTIONS (3)
  - Renal failure [Not Recovered/Not Resolved]
  - Hypercalcaemia [Unknown]
  - Plasma cell myeloma [Unknown]

NARRATIVE: CASE EVENT DATE: 2019
